FAERS Safety Report 19798402 (Version 1)
Quarter: 2021Q3

REPORT INFORMATION
  Report Type: Report from Study
  Country: None (occurrence: DE)
  Receive Date: 20210906
  Receipt Date: 20210906
  Transmission Date: 20211014
  Serious: Yes (Death, Hospitalization)
  Sender: FDA-Public Use
  Company Number: DE-ABBVIE-21K-062-4056735-00

PATIENT
  Sex: Female

DRUGS (2)
  1. DUODOPA [Suspect]
     Active Substance: CARBIDOPA\LEVODOPA
  2. DUODOPA [Suspect]
     Active Substance: CARBIDOPA\LEVODOPA
     Indication: PARKINSON^S DISEASE
     Dosage: MD 5 ML, CRD 4 ML/H, ED 1 ML
     Route: 050
     Dates: start: 20191028

REACTIONS (4)
  - Depression [Not Recovered/Not Resolved]
  - Akinesia [Not Recovered/Not Resolved]
  - Dysphagia [Not Recovered/Not Resolved]
  - General physical health deterioration [Fatal]
